FAERS Safety Report 5756217-7 (Version None)
Quarter: 2008Q2

REPORT INFORMATION
  Report Type: 
  Country: None (occurrence: None)
  Receive Date: 20080602
  Receipt Date: 20080521
  Transmission Date: 20081010
  Serious: Yes (Other)
  Sender: FDA-Public Use
  Company Number: US-PFIZER INC-2008037293

PATIENT
  Sex: Male
  Weight: 76.4 kg

DRUGS (13)
  1. CHANTIX [Suspect]
     Indication: SMOKING CESSATION THERAPY
  2. DEPAKOTE [Concomitant]
  3. PREVACID [Concomitant]
  4. INDOMETHACIN [Concomitant]
  5. CYCLOBENZAPRINE HCL [Concomitant]
  6. TERAZOSIN HCL [Concomitant]
  7. ALBUTEROL [Concomitant]
  8. ADVAIR DISKUS 100/50 [Concomitant]
  9. NALTREXONE HYDROCHLORIDE [Concomitant]
  10. WELLBUTRIN [Concomitant]
  11. BUSPAR [Concomitant]
  12. SPIRIVA [Concomitant]
  13. FLEXERIL [Concomitant]

REACTIONS (1)
  - DEPRESSION [None]
